FAERS Safety Report 4875386-4 (Version None)
Quarter: 2006Q1

REPORT INFORMATION
  Report Type: 
  Country: None (occurrence: None)
  Receive Date: 20060104
  Receipt Date: 20051222
  Transmission Date: 20060701
  Serious: Yes (Hospitalization)
  Sender: FDA-Public Use
  Company Number: DE-2005-026502

PATIENT
  Age: 35 Year
  Sex: Female
  Weight: 58 kg

DRUGS (1)
  1. MIRENA [Suspect]
     Indication: CONTRACEPTION
     Dosage: 20 UG/DAY, CONT, INTRA-UTERINE
     Route: 015
     Dates: start: 20051121, end: 20051129

REACTIONS (7)
  - ACUTE ABDOMEN [None]
  - ANAEMIA [None]
  - ENDOMETRITIS [None]
  - FALL [None]
  - HAEMORRHAGE [None]
  - RETAINED PLACENTA OR MEMBRANES [None]
  - THROMBOSIS [None]
